FAERS Safety Report 16584054 (Version 1)
Quarter: 2019Q3

REPORT INFORMATION
  Report Type: Report from Study
  Country: None (occurrence: CA)
  Receive Date: 20190717
  Receipt Date: 20190717
  Transmission Date: 20191004
  Serious: Yes (Other)
  Sender: FDA-Public Use
  Company Number: CA-ABBVIE-19K-028-2852881-00

PATIENT
  Sex: Female

DRUGS (1)
  1. HUMIRA [Suspect]
     Active Substance: ADALIMUMAB
     Indication: COLITIS ULCERATIVE
     Route: 058
     Dates: start: 20151008

REACTIONS (3)
  - Peripheral swelling [Not Recovered/Not Resolved]
  - Calcinosis [Unknown]
  - Post procedural infection [Unknown]

NARRATIVE: CASE EVENT DATE: 2019
